FAERS Safety Report 25722834 (Version 1)
Quarter: 2025Q3

REPORT INFORMATION
  Report Type: Spontaneous
  Country: US (occurrence: US)
  Receive Date: 20250825
  Receipt Date: 20250825
  Transmission Date: 20251020
  Serious: No
  Sender: MYLAN
  Company Number: US-MYLANLABS-2025M1069137

PATIENT
  Sex: Female
  Weight: 124.74 kg

DRUGS (11)
  1. ESTRADIOL TRANSDERMAL SYSTEM [Suspect]
     Active Substance: ESTRADIOL
     Indication: Hysterectomy
     Dosage: 0.05 MILLIGRAM, QD (PER DAY, ONCE WEEKLY)
     Dates: start: 2025
  2. LEVOTHYROXINE [Concomitant]
     Active Substance: LEVOTHYROXINE
     Indication: Thyroid disorder
  3. SEROQUEL [Concomitant]
     Active Substance: QUETIAPINE FUMARATE
     Dosage: UNK, BID (TWO DIFFERENT STRENGTHS ADMINISTERED IN THE MORNING AND AT NIGHT)
  4. METOPROLOL [Concomitant]
     Active Substance: METOPROLOL
     Indication: Hypertension
  5. DONEPEZIL [Concomitant]
     Active Substance: DONEPEZIL
  6. XANAX [Concomitant]
     Active Substance: ALPRAZOLAM
  7. LAMOTRIGINE [Concomitant]
     Active Substance: LAMOTRIGINE
  8. SULINDAC [Concomitant]
     Active Substance: SULINDAC
  9. LITHIUM [Concomitant]
     Active Substance: LITHIUM
  10. OMEPRAZOLE [Concomitant]
     Active Substance: OMEPRAZOLE
  11. CAPLYTA [Concomitant]
     Active Substance: LUMATEPERONE

REACTIONS (5)
  - Application site irritation [Unknown]
  - Application site pruritus [Unknown]
  - Application site erythema [Unknown]
  - Application site inflammation [Unknown]
  - Product adhesion issue [Unknown]

NARRATIVE: CASE EVENT DATE: 20250101
